FAERS Safety Report 8276227-8 (Version None)
Quarter: 2012Q2

REPORT INFORMATION
  Report Type: 
  Country: None (occurrence: None)
  Receive Date: 20120409
  Receipt Date: 20120402
  Transmission Date: 20120825
  Serious: Yes (Hospitalization, Disabling)
  Sender: FDA-Public Use
  Company Number: 2012SP013378

PATIENT
  Age: 74 Year
  Sex: Male
  Weight: 62.8 kg

DRUGS (8)
  1. RAMELTEON [Concomitant]
  2. MICARDIS [Concomitant]
  3. NITRAZEPAM [Concomitant]
  4. GRAMALIL [Concomitant]
  5. PREDNISOLONE [Suspect]
     Indication: BRAIN OEDEMA
     Dosage: 15 MG; QD; PO
     Route: 048
     Dates: start: 20110815, end: 20120313
  6. FAMOTIDINE [Concomitant]
  7. PLETAL [Concomitant]
  8. TEMODAL [Suspect]
     Indication: ANAPLASTIC ASTROCYTOMA
     Dosage: 340 MG; QD; PO
     Route: 048
     Dates: start: 20120214, end: 20120218

REACTIONS (6)
  - PNEUMONIA [None]
  - UPPER RESPIRATORY TRACT INFECTION [None]
  - HEMIPLEGIA [None]
  - INFLUENZA [None]
  - ALTERED STATE OF CONSCIOUSNESS [None]
  - ENCEPHALITIS HERPES [None]
